FAERS Safety Report 5129441-4 (Version None)
Quarter: 2006Q4

REPORT INFORMATION
  Report Type: 
  Country: None (occurrence: None)
  Receive Date: 20061012
  Receipt Date: 20061004
  Transmission Date: 20070319
  Serious: Yes (Other)
  Sender: FDA-Public Use
  Company Number: GXKR2006GB06221

PATIENT
  Age: 72 Year
  Sex: Female

DRUGS (6)
  1. PAROXETINE HCL [Suspect]
     Indication: DRUG USE FOR UNKNOWN INDICATION
     Dosage: 20 MG, ORAL
     Route: 048
  2. BACTROBAN /NET/ (MUPIROCIN CALCIUM) [Concomitant]
  3. IBUPROFEN [Concomitant]
  4. CITALOPRAM HYDROBROMIDE [Concomitant]
  5. CO-CODAMOL (CODEINE PHOSPHATE, PARACETAMOL) [Concomitant]
  6. DAKTACORT (HYDROCORTISONE, MICONAZOLE NITRATE) [Concomitant]

REACTIONS (2)
  - DYSPHAGIA [None]
  - TARDIVE DYSKINESIA [None]
